FAERS Safety Report 14544766 (Version 1)
Quarter: 2018Q1

REPORT INFORMATION
  Report Type: Spontaneous
  Country: NL (occurrence: NL)
  Receive Date: 20180217
  Receipt Date: 20180217
  Transmission Date: 20180509
  Serious: Yes (Other)
  Sender: FDA-Public Use
  Company Number: NL-BRISTOL-MYERS SQUIBB COMPANY-BMS-2018-012804

PATIENT
  Age: 6 Decade
  Sex: Female

DRUGS (1)
  1. KENACORT-A [Suspect]
     Active Substance: TRIAMCINOLONE
     Indication: RHEUMATOID ARTHRITIS
     Dosage: 40 MG/ML, UNK
     Route: 030

REACTIONS (2)
  - Injection site atrophy [Recovered/Resolved with Sequelae]
  - Injection site necrosis [Recovered/Resolved with Sequelae]

NARRATIVE: CASE EVENT DATE: 20151214
